FAERS Safety Report 4679376-6 (Version None)
Quarter: 2005Q2

REPORT INFORMATION
  Report Type: 
  Country: None (occurrence: None)
  Receive Date: 20050531
  Receipt Date: 20050526
  Transmission Date: 20051028
  Serious: Yes (Other)
  Sender: FDA-Public Use
  Company Number: 2004-12-0940

PATIENT
  Age: 42 Year
  Sex: Male

DRUGS (5)
  1. PEG-INTRON (PEGINTERFERON ALFA-1B) REDIPEN [Suspect]
     Indication: HEPATITIS C
     Dosage: SUBCUTANEOUS
     Route: 058
     Dates: start: 20041201
  2. . [Concomitant]
  3. RIBAVIRIN [Suspect]
     Indication: HEPATITIS
     Dosage: ORAL
     Route: 048
     Dates: start: 20041201
  4. RIBAVIRIN [Suspect]
  5. INSULIN [Suspect]
     Indication: DIABETES MELLITUS
     Dosage: ^OVERDOSE^

REACTIONS (12)
  - CONVULSION [None]
  - DEPRESSION [None]
  - DEVICE FAILURE [None]
  - DIABETES MELLITUS INADEQUATE CONTROL [None]
  - HYPOGLYCAEMIA [None]
  - INCORRECT DOSE ADMINISTERED [None]
  - LOSS OF CONSCIOUSNESS [None]
  - MENTAL DISORDER [None]
  - MYALGIA [None]
  - OVERDOSE [None]
  - PHARMACEUTICAL PRODUCT COMPLAINT [None]
  - TREATMENT NONCOMPLIANCE [None]
